FAERS Safety Report 21257884 (Version 1)
Quarter: 2022Q3

REPORT INFORMATION
  Report Type: Spontaneous
  Country: IL (occurrence: IL)
  Receive Date: 20220826
  Receipt Date: 20220826
  Transmission Date: 20221026
  Serious: Yes (Hospitalization)
  Sender: FDA-Public Use
  Company Number: IL-NOVARTISPH-NVSC2022IL189718

PATIENT
  Age: 70 Year
  Sex: Female

DRUGS (1)
  1. LEQVIO [Suspect]
     Active Substance: INCLISIRAN SODIUM
     Indication: Hypercholesterolaemia
     Dosage: 284 MG (FIRST INJECTION)
     Route: 065
     Dates: start: 20220712

REACTIONS (2)
  - Atrial fibrillation [Recovering/Resolving]
  - Hypertension [Recovering/Resolving]
